FAERS Safety Report 9098810 (Version 2)
Quarter: 2013Q1

REPORT INFORMATION
  Report Type: Spontaneous
  Country: JP (occurrence: JP)
  Receive Date: 20130213
  Receipt Date: 20130222
  Transmission Date: 20140127
  Serious: Yes (Other)
  Sender: FDA-Public Use
  Company Number: JP-BRISTOL-MYERS SQUIBB COMPANY-17345257

PATIENT
  Sex: 0

DRUGS (5)
  1. BARACLUDE [Suspect]
     Indication: CHRONIC HEPATITIS B
     Route: 048
  2. CYCLOPHOSPHAMIDE [Suspect]
     Indication: LYMPHOMA
  3. RITUXIMAB [Suspect]
     Indication: LYMPHOMA
  4. DOXORUBICIN [Suspect]
     Indication: LYMPHOMA
  5. VINCRISTINE [Suspect]
     Indication: LYMPHOMA

REACTIONS (2)
  - Viral load increased [Unknown]
  - Alanine aminotransferase increased [Unknown]
